FAERS Safety Report 7092717-8 (Version None)
Quarter: 2010Q4

REPORT INFORMATION
  Report Type: 
  Country: None (occurrence: None)
  Receive Date: 20101109
  Receipt Date: 20101109
  Transmission Date: 20110411
  Serious: Yes (Life-Threatening)
  Sender: FDA-Public Use
  Company Number: None

PATIENT
  Sex: Female
  Weight: 81.6475 kg

DRUGS (2)
  1. SEROQUEL [Suspect]
     Indication: ANXIETY
     Dosage: 1 DAILY  5660233
     Dates: start: 20100924
  2. DEPECOTE [Concomitant]

REACTIONS (3)
  - EXPIRED DRUG ADMINISTERED [None]
  - FEELING JITTERY [None]
  - PULSE PRESSURE DECREASED [None]
